FAERS Safety Report 21409995 (Version 4)
Quarter: 2022Q4

REPORT INFORMATION
  Report Type: Report from Study
  Country: US (occurrence: US)
  Receive Date: 20221005
  Receipt Date: 20221230
  Transmission Date: 20230113
  Serious: Yes (Hospitalization)
  Sender: FDA-Public Use
  Company Number: US-TAKEDA-2022TUS070117

PATIENT
  Sex: Male

DRUGS (2)
  1. MARIBAVIR [Suspect]
     Active Substance: MARIBAVIR
     Indication: Cytomegalovirus infection
     Dosage: 2 DOSAGE FORM, BID
     Route: 048
     Dates: start: 20220928, end: 20221128
  2. MARIBAVIR [Suspect]
     Active Substance: MARIBAVIR
     Dosage: 2 DOSAGE FORM, BID
     Route: 048
     Dates: start: 20221211

REACTIONS (11)
  - Hospitalisation [Unknown]
  - Gastric disorder [Unknown]
  - Taste disorder [Unknown]
  - Head discomfort [Unknown]
  - Decreased appetite [Unknown]
  - Stress [Unknown]
  - Dyspnoea [Unknown]
  - Muscular weakness [Unknown]
  - Contusion [Unknown]
  - Dry mouth [Unknown]
  - Fall [Unknown]
